FAERS Safety Report 12662573 (Version 3)
Quarter: 2016Q4

REPORT INFORMATION
  Report Type: Report from Study
  Country: JP (occurrence: JP)
  Receive Date: 20160818
  Receipt Date: 20161203
  Transmission Date: 20170207
  Serious: Yes (Death, Other)
  Sender: FDA-Public Use
  Company Number: JP-AMGEN-JPNCT2016106818

PATIENT
  Age: 84 Year
  Sex: Male

DRUGS (26)
  1. ALDACTONE A [Concomitant]
     Active Substance: SPIRONOLACTONE
     Indication: CARDIAC FAILURE
     Dosage: 25 MG, UNK
     Route: 048
  2. TRAMAL [Concomitant]
     Active Substance: TRAMADOL
     Indication: BACK PAIN
     Dosage: 25 MG, UNK
     Route: 048
     Dates: start: 20150828, end: 20151211
  3. FORTEO [Concomitant]
     Active Substance: TERIPARATIDE
     Indication: OSTEOPOROSIS
     Dosage: 600 MG, UNK
     Route: 058
     Dates: start: 20150828
  4. FORTEO [Concomitant]
     Active Substance: TERIPARATIDE
     Indication: SPINAL COMPRESSION FRACTURE
  5. LEVOFLOXACIN HEMIHYDRATE [Concomitant]
     Active Substance: LEVOFLOXACIN
     Indication: URINARY TRACT INFECTION
     Dosage: 500 MG, UNK
     Route: 048
     Dates: start: 20151003, end: 20151007
  6. FLOMOX [Concomitant]
     Active Substance: CEFCAPENE PIVOXIL HYDROCHLORIDE HYDRATE
     Indication: URINARY TRACT INFECTION
     Dosage: 300 MG, UNK
     Route: 048
     Dates: start: 20151212, end: 20151215
  7. ITOROL [Concomitant]
     Active Substance: ISOSORBIDE MONONITRATE
     Indication: MYOCARDIAL ISCHAEMIA
     Dosage: 40 MG, UNK
     Route: 048
     Dates: start: 20140918
  8. NEO VITACAIN [Concomitant]
     Indication: MYOFASCIAL PAIN SYNDROME
     Dosage: 5 ML, UNK
     Route: 061
     Dates: start: 20150521
  9. DOMPERIDONE [Concomitant]
     Active Substance: DOMPERIDONE
     Indication: VOMITING
  10. NEUROTROPIN [Concomitant]
     Active Substance: NEUROTROPIN
     Indication: MYOFASCIAL PAIN SYNDROME
     Dosage: 3 ML, UNK
     Route: 065
     Dates: start: 20150521
  11. CELECOX [Concomitant]
     Active Substance: CELECOXIB
     Indication: MYOFASCIAL PAIN SYNDROME
     Dosage: 200 MG, UNK
     Route: 048
     Dates: start: 20150521
  12. ASPARA-CA [Concomitant]
     Active Substance: CALCIUM ASPARTATE
     Indication: OSTEOPOROSIS
     Dosage: 600 MG, UNK
     Route: 048
     Dates: start: 20150828
  13. NOVAMIN [Concomitant]
     Active Substance: PROCHLORPERAZINE MALEATE
     Indication: BACK PAIN
     Dosage: 20 MG, UNK
     Route: 048
     Dates: start: 20150911
  14. DARBEPOETIN ALFA [Suspect]
     Active Substance: DARBEPOETIN ALFA
     Indication: MYELODYSPLASTIC SYNDROME
     Dosage: 240 MUG, QWK
     Route: 058
     Dates: start: 20150129, end: 20151203
  15. ASPARA-CA [Concomitant]
     Active Substance: CALCIUM ASPARTATE
     Indication: SPINAL COMPRESSION FRACTURE
  16. PERSANTIN [Concomitant]
     Active Substance: DIPYRIDAMOLE
     Indication: MYOCARDIAL ISCHAEMIA
     Dosage: 75 MG, UNK
     Route: 048
  17. AVOLVE [Concomitant]
     Active Substance: DUTASTERIDE
     Indication: BENIGN PROSTATIC HYPERPLASIA
     Dosage: 0.5 MG, UNK
     Route: 048
  18. MAGMITT [Concomitant]
     Active Substance: MAGNESIUM OXIDE
     Indication: CONSTIPATION
     Dosage: 1500 MG, UNK
     Route: 048
  19. POPSCAINE [Concomitant]
     Active Substance: LEVOBUPIVACAINE HYDROCHLORIDE
     Indication: MYOFASCIAL PAIN SYNDROME
     Dosage: 75 MG, UNK
     Route: 008
     Dates: start: 20150522, end: 20151006
  20. ONETRAM [Concomitant]
     Active Substance: TRAMADOL HYDROCHLORIDE
     Indication: BACK PAIN
     Dosage: 200 MG, UNK
     Route: 048
     Dates: start: 20150925, end: 20151211
  21. PURSENNID [Concomitant]
     Active Substance: SENNOSIDES A AND B
     Indication: CONSTIPATION
     Dosage: 24 MG, UNK
     Route: 048
  22. TEPRENONE [Concomitant]
     Active Substance: TEPRENONE
     Indication: MYOFASCIAL PAIN SYNDROME
     Dosage: 100 MG, UNK
     Route: 048
     Dates: start: 20150521
  23. LASIX [Concomitant]
     Active Substance: FUROSEMIDE
     Indication: CARDIAC FAILURE
     Dosage: 40 MG, UNK
     Route: 048
     Dates: end: 20150808
  24. DOMPERIDONE [Concomitant]
     Active Substance: DOMPERIDONE
     Indication: NAUSEA
     Dosage: 30 MG, UNK
     Route: 048
     Dates: start: 20151008
  25. LUPRAC [Concomitant]
     Active Substance: TORSEMIDE
     Indication: CARDIAC FAILURE
     Dosage: 4 MG, UNK
     Route: 048
     Dates: start: 20131115
  26. FUNGIZONE [Concomitant]
     Active Substance: AMPHOTERICIN B
     Indication: ORAL CANDIDIASIS
     Dosage: 4 ML, UNK
     Route: 048
     Dates: start: 20151001, end: 20151008

REACTIONS (16)
  - Spinal compression fracture [Recovered/Resolved]
  - Cardiac failure congestive [Recovered/Resolved]
  - Back pain [Recovered/Resolved]
  - Vomiting [Not Recovered/Not Resolved]
  - Cardiac failure congestive [Recovered/Resolved]
  - Myofascial pain syndrome [Recovering/Resolving]
  - Pneumonia [Recovered/Resolved]
  - Cardiac failure congestive [Recovered/Resolved]
  - Oral candidiasis [Recovering/Resolving]
  - Urinary tract infection [Recovering/Resolving]
  - Pneumonia [Recovered/Resolved]
  - Urinary tract infection [Recovering/Resolving]
  - Death [Fatal]
  - Spinal compression fracture [Recovering/Resolving]
  - Pneumonia [Recovered/Resolved]
  - Osteoporosis [Recovering/Resolving]

NARRATIVE: CASE EVENT DATE: 20150216
